FAERS Safety Report 8579898-1 (Version None)
Quarter: 2012Q3

REPORT INFORMATION
  Report Type: 
  Country: None (occurrence: None)
  Receive Date: 20120808
  Receipt Date: 20120801
  Transmission Date: 20120928
  Serious: Yes (Other)
  Sender: FDA-Public Use
  Company Number: PHHY2012IT053373

PATIENT
  Age: 50 Year
  Sex: Male

DRUGS (3)
  1. CYCLOSPORINE [Suspect]
     Indication: PSORIASIS
  2. METHOTREXATE [Suspect]
     Indication: PSORIASIS
  3. ADALIMUMAB [Suspect]
     Indication: CHONDROPATHY
     Dosage: 40 MG, BIWEEKLY

REACTIONS (6)
  - NERVE COMPRESSION [None]
  - SALIVARY GLAND ADENOMA [None]
  - CHONDROPATHY [None]
  - ORAL DISORDER [None]
  - SALIVARY GLAND ENLARGEMENT [None]
  - DRUG INEFFECTIVE [None]
